FAERS Safety Report 21671472 (Version 1)
Quarter: 2022Q4

REPORT INFORMATION
  Report Type: Spontaneous
  Country: US (occurrence: US)
  Receive Date: 20221202
  Receipt Date: 20221202
  Transmission Date: 20230112
  Serious: Yes (Life-Threatening, Other)
  Sender: FDA-Public Use
  Company Number: US-drreddys-LIT/USA/22/0157687

PATIENT
  Age: 17 Year
  Sex: Female

DRUGS (17)
  1. PYRIDOXINE HYDROCHLORIDE [Suspect]
     Active Substance: PYRIDOXINE HYDROCHLORIDE
     Indication: Status epilepticus
  2. LORAZEPAM [Suspect]
     Active Substance: LORAZEPAM
     Indication: Status epilepticus
  3. LORAZEPAM [Suspect]
     Active Substance: LORAZEPAM
     Dosage: LOW DOSE
  4. PERAMPANEL [Suspect]
     Active Substance: PERAMPANEL
     Indication: Status epilepticus
  5. CANNABIDIOL [Suspect]
     Active Substance: CANNABIDIOL
     Indication: Status epilepticus
  6. LACOSAMIDE [Suspect]
     Active Substance: LACOSAMIDE
     Indication: Status epilepticus
  7. PHENOBARBITAL [Suspect]
     Active Substance: PHENOBARBITAL
     Indication: Status epilepticus
  8. ANAKINRA [Suspect]
     Active Substance: ANAKINRA
     Indication: Status epilepticus
  9. ANAKINRA [Suspect]
     Active Substance: ANAKINRA
     Dosage: LOW DOSE
  10. BRIVARACETAM [Suspect]
     Active Substance: BRIVARACETAM
     Indication: Status epilepticus
  11. BRIVARACETAM [Suspect]
     Active Substance: BRIVARACETAM
     Dosage: LOW DOSE
  12. VALPROIC ACID [Suspect]
     Active Substance: VALPROIC ACID
     Indication: Status epilepticus
  13. VALPROIC ACID [Suspect]
     Active Substance: VALPROIC ACID
     Dosage: LOW DOSE
  14. FELBAMATE [Suspect]
     Active Substance: FELBAMATE
     Indication: Status epilepticus
  15. GANAXOLONE [Suspect]
     Active Substance: GANAXOLONE
     Indication: Status epilepticus
     Dosage: FOLLOWED BY INFUSION OVER 4 DAYS (WITH GNX BOLUSES AS NEEDED FOR BREAKTHROUGH SEIZURES) FOLLOWED BY
     Route: 040
  16. GANAXOLONE [Suspect]
     Active Substance: GANAXOLONE
     Dosage: MAXIMAL ADULT DOSE OF 1800 MG/DAY DIVIDED THREE TIMES A DAY
     Route: 048
  17. GANAXOLONE [Suspect]
     Active Substance: GANAXOLONE
     Dosage: FOLLOWED BY INFUSION OVER 4 DAYS (WITH GNX BOLUSES AS NEEDED FOR BREAKTHROUGH SEIZURES) FOLLOWED BY

REACTIONS (4)
  - Drug ineffective for unapproved indication [Unknown]
  - Cerebral atrophy [Unknown]
  - Parainfluenzae virus infection [Unknown]
  - Device dependence [Unknown]
